FAERS Safety Report 13059274 (Version 2)
Quarter: 2017Q4

REPORT INFORMATION
  Report Type: Spontaneous
  Country: US (occurrence: US)
  Receive Date: 20161223
  Receipt Date: 20171116
  Transmission Date: 20180320
  Serious: No
  Sender: FDA-Public Use
  Company Number: US-BAUSCH-BL-2016-018809

PATIENT
  Sex: Female

DRUGS (3)
  1. XENAZINE [Suspect]
     Active Substance: TETRABENAZINE
     Dosage: 2 TABLETS IN THE MORNING AND 1 IN THE EVENING
     Route: 048
  2. XENAZINE [Suspect]
     Active Substance: TETRABENAZINE
     Indication: HUNTINGTON^S DISEASE
     Route: 048
     Dates: start: 20160809
  3. XENAZINE [Suspect]
     Active Substance: TETRABENAZINE
     Dosage: STARTED TO TAKE XENAZINE CORRECTLY AT 1 TABLET THREE TIMES DAILY
     Route: 048

REACTIONS (6)
  - Adverse drug reaction [Unknown]
  - Malaise [Recovered/Resolved]
  - Incorrect dose administered [Unknown]
  - Insomnia [Unknown]
  - Anger [Unknown]
  - Drug ineffective [Not Recovered/Not Resolved]

NARRATIVE: CASE EVENT DATE: 2016
